FAERS Safety Report 11872921 (Version 3)
Quarter: 2020Q2

REPORT INFORMATION
  Report Type: Spontaneous
  Country: US (occurrence: US)
  Receive Date: 20151228
  Receipt Date: 20200601
  Transmission Date: 20200713
  Serious: Yes (Other)
  Sender: FDA-Public Use
  Company Number: US-PFIZER INC-2015460116

PATIENT
  Age: 51 Year

DRUGS (3)
  1. VIAGRA [Concomitant]
     Active Substance: SILDENAFIL CITRATE
     Dosage: UNK
  2. LYRICA [Concomitant]
     Active Substance: PREGABALIN
     Dosage: UNK
  3. NEURONTIN [Suspect]
     Active Substance: GABAPENTIN
     Dosage: UNK

REACTIONS (11)
  - Parkinson^s disease [Unknown]
  - Visual impairment [Unknown]
  - Fatigue [Unknown]
  - Weight decreased [Unknown]
  - Spinal deformity [Unknown]
  - Tremor [Unknown]
  - Head injury [Unknown]
  - Body height decreased [Unknown]
  - Drug ineffective [Unknown]
  - Pollakiuria [Unknown]
  - Fall [Unknown]
